FAERS Safety Report 5942100-0 (Version None)
Quarter: 2008Q4

REPORT INFORMATION
  Report Type: 
  Country: None (occurrence: None)
  Receive Date: 20081105
  Receipt Date: 20081030
  Transmission Date: 20090506
  Serious: Yes (Other)
  Sender: FDA-Public Use
  Company Number: CA-JNJCH-2008053459

PATIENT
  Age: 16 Month
  Sex: Female

DRUGS (1)
  1. BENYLIN DM-D-E EXTRA STRENGTH [Suspect]
     Indication: ACCIDENTAL EXPOSURE
     Dosage: TEXT:COUPLE MOUTHFULS
     Route: 048

REACTIONS (3)
  - ACCIDENTAL DRUG INTAKE BY CHILD [None]
  - HEART RATE INCREASED [None]
  - SOMNOLENCE [None]
